FAERS Safety Report 12332042 (Version 2)
Quarter: 2016Q2

REPORT INFORMATION
  Report Type: Spontaneous
  Country: US (occurrence: US)
  Receive Date: 20160504
  Receipt Date: 20160527
  Transmission Date: 20160815
  Serious: No
  Sender: FDA-Public Use
  Company Number: US-PFIZER INC-2016240407

PATIENT
  Age: 84 Year
  Sex: Female
  Weight: 48 kg

DRUGS (6)
  1. LOSARTAN. [Concomitant]
     Active Substance: LOSARTAN
     Indication: HYPERTENSION
     Dosage: 100MG TABLET BY MOUTH EVERY MORNING
     Route: 048
  2. DOXAZOSIN MESILATE [Suspect]
     Active Substance: DOXAZOSIN MESYLATE
     Indication: HYPERTENSION
     Dosage: 2MG TABLET BY MOUTH AT NIGHT
     Route: 048
     Dates: start: 201603, end: 20160426
  3. VITAMIN E [Concomitant]
     Active Substance: .ALPHA.-TOCOPHEROL
     Dosage: EVERY DAY BY MOUTH
     Route: 048
  4. VITAMIN D [Concomitant]
     Active Substance: CHOLECALCIFEROL
     Dosage: EVERY DAY BY MOUTH
     Route: 048
  5. MAGNESIUM [Concomitant]
     Active Substance: MAGNESIUM
     Dosage: EVERY DAY BY MOUTH
     Route: 048
  6. FISH OIL [Concomitant]
     Active Substance: FISH OIL
     Dosage: EVERY DAY BY MOUTH
     Route: 048

REACTIONS (5)
  - Arthralgia [Unknown]
  - Abdominal pain [Recovering/Resolving]
  - Joint swelling [Recovering/Resolving]
  - Rhinorrhoea [Unknown]
  - Feeling abnormal [Unknown]

NARRATIVE: CASE EVENT DATE: 201604
